FAERS Safety Report 7289908-X (Version None)
Quarter: 2011Q1

REPORT INFORMATION
  Report Type: 
  Country: None (occurrence: None)
  Receive Date: 20110214
  Receipt Date: 20110201
  Transmission Date: 20110831
  Serious: Yes (Hospitalization, Congenital Anomaly)
  Sender: FDA-Public Use
  Company Number: ES-ELI_LILLY_AND_COMPANY-ES201102000418

PATIENT
  Sex: Female
  Weight: 58 kg

DRUGS (7)
  1. FORTEO [Suspect]
     Indication: OSTEOPOROSIS
     Dosage: 20 UG, DAILY (1/D)
     Route: 058
     Dates: start: 20100713
  2. BAYPRESOL [Concomitant]
     Indication: HYPERTENSION
     Dosage: 1 D/F, WEEKLY (1/W)
     Route: 048
  3. OMEPRAZOLE [Concomitant]
     Indication: GASTRIC DISORDER
     Dosage: 1 D/F, 2/D
     Route: 048
  4. TRAMADOL HCL [Concomitant]
     Indication: PAIN
     Dosage: 1 D/F, DAILY (1/D)
     Route: 048
  5. NATECAL D [Concomitant]
     Indication: OSTEOPOROSIS
     Dosage: 1 D/F, 2/D
     Route: 048
  6. DIOVAN [Concomitant]
     Indication: HYPERTENSION
     Dosage: 0.5 D/F, DAILY (1/D)
     Route: 048
  7. EZETROL [Concomitant]
     Indication: DYSLIPIDAEMIA
     Dosage: 1 D/F, DAILY (1/D)
     Route: 048

REACTIONS (2)
  - FALL [None]
  - WRIST FRACTURE [None]
